FAERS Safety Report 8427483-4 (Version None)
Quarter: 2012Q2

REPORT INFORMATION
  Report Type: 
  Country: None (occurrence: None)
  Receive Date: 20120611
  Receipt Date: 20120601
  Transmission Date: 20120825
  Serious: Yes (Hospitalization)
  Sender: FDA-Public Use
  Company Number: FR-ELI_LILLY_AND_COMPANY-FR201206001272

PATIENT
  Age: 60 Year
  Sex: Male

DRUGS (3)
  1. ALIMTA [Suspect]
     Indication: LUNG ADENOCARCINOMA
     Dosage: UNK
     Route: 042
     Dates: start: 20120501
  2. CISPLATIN [Concomitant]
     Indication: LUNG ADENOCARCINOMA
  3. DICUMAROL [Concomitant]

REACTIONS (2)
  - COLITIS [None]
  - GASTRITIS HAEMORRHAGIC [None]
